FAERS Safety Report 6924951-9 (Version None)
Quarter: 2010Q3

REPORT INFORMATION
  Report Type: 
  Country: None (occurrence: None)
  Receive Date: 20100816
  Receipt Date: 20100805
  Transmission Date: 20110219
  Serious: Yes (Hospitalization)
  Sender: FDA-Public Use
  Company Number: US-CELGENEUS-163-21880-10080568

PATIENT
  Sex: Male

DRUGS (1)
  1. REVLIMID [Suspect]
     Route: 048
     Dates: start: 20100505

REACTIONS (5)
  - ATAXIA [None]
  - CONFUSIONAL STATE [None]
  - FATIGUE [None]
  - LEUKOPENIA [None]
  - OEDEMA PERIPHERAL [None]
